FAERS Safety Report 25747689 (Version 1)
Quarter: 2025Q3

REPORT INFORMATION
  Report Type: Spontaneous
  Country: CN (occurrence: CN)
  Receive Date: 20250901
  Receipt Date: 20250901
  Transmission Date: 20251021
  Serious: Yes (Hospitalization)
  Sender: JOHNSON AND JOHNSON
  Company Number: CN-JNJFOC-20250900378

PATIENT
  Age: 80 Year
  Sex: Male
  Weight: 55 kg

DRUGS (1)
  1. XARELTO [Suspect]
     Active Substance: RIVAROXABAN
     Indication: Pulmonary embolism
     Dosage: 10 MG, QD
     Route: 048
     Dates: start: 20250805, end: 20250808

REACTIONS (8)
  - Haematuria [Recovering/Resolving]
  - Urine ketone body present [Recovered/Resolved]
  - Protein urine present [Recovered/Resolved]
  - Nitrite urine present [Recovered/Resolved]
  - White blood cells urine positive [Recovered/Resolved]
  - Bacterial test positive [Unknown]
  - Crystal urine present [Unknown]
  - Underdose [Unknown]

NARRATIVE: CASE EVENT DATE: 20250805
